FAERS Safety Report 7888817-2 (Version None)
Quarter: 2011Q4

REPORT INFORMATION
  Report Type: 
  Country: None (occurrence: None)
  Receive Date: 20111103
  Receipt Date: 20111028
  Transmission Date: 20120403
  Serious: Yes (Death, Hospitalization)
  Sender: FDA-Public Use
  Company Number: US-DX529-2011DX000056

PATIENT
  Sex: Female

DRUGS (1)
  1. KALBITOR [Suspect]
     Indication: HEREDITARY ANGIOEDEMA
     Route: 058
     Dates: start: 20110324, end: 20110324

REACTIONS (1)
  - LARGE CELL LUNG CANCER METASTATIC [None]
